FAERS Safety Report 6158434-3 (Version None)
Quarter: 2009Q2

REPORT INFORMATION
  Report Type: 
  Country: None (occurrence: None)
  Receive Date: 20090417
  Receipt Date: 20090408
  Transmission Date: 20091009
  Serious: Yes (Life-Threatening, Hospitalization)
  Sender: FDA-Public Use
  Company Number: CA-BAYER-200917948NA

PATIENT
  Age: 68 Year
  Sex: Female
  Weight: 79 kg

DRUGS (10)
  1. AVELOX [Suspect]
     Indication: DRUG USE FOR UNKNOWN INDICATION
     Route: 048
  2. ADVAIR HFA [Concomitant]
     Route: 055
  3. ATENOLOL [Concomitant]
  4. FUROSEMIDE [Concomitant]
  5. HYDROCHLOROTHIAZIDE [Concomitant]
  6. PRAVASTATIN SODIUM [Concomitant]
  7. SERTRALINE HCL [Concomitant]
  8. SLOW-K [Concomitant]
  9. SPIRIVA [Concomitant]
  10. TYLENOL [Concomitant]

REACTIONS (6)
  - BLOOD POTASSIUM DECREASED [None]
  - DYSPNOEA [None]
  - ERYTHEMA [None]
  - NAUSEA [None]
  - PO2 DECREASED [None]
  - PRURITUS [None]
